FAERS Safety Report 19453499 (Version 3)
Quarter: 2021Q3

REPORT INFORMATION
  Report Type: Spontaneous
  Country: US (occurrence: US)
  Receive Date: 20210623
  Receipt Date: 20210718
  Transmission Date: 20211014
  Serious: No
  Sender: FDA-Public Use
  Company Number: US-LUPIN PHARMACEUTICALS INC.-2021-09996

PATIENT
  Age: 76 Year
  Sex: Female
  Weight: 48.53 kg

DRUGS (4)
  1. BUDESONIDE INHALATION SUSPENSION, 0.5 MG/2 ML [Suspect]
     Active Substance: BUDESONIDE
     Dosage: UNK UNK, BID (NEW MEDICATION) (ORAL SPRAY VIA NEBULIZER)
     Route: 065
     Dates: start: 202106
  2. SPIRIVA [Concomitant]
     Active Substance: TIOTROPIUM BROMIDE MONOHYDRATE
     Indication: PRODUCT USED FOR UNKNOWN INDICATION
     Dosage: UNK
  3. BUDESONIDE INHALATION SUSPENSION, 0.5 MG/2 ML [Suspect]
     Active Substance: BUDESONIDE
     Dosage: UNK, BID (TWICE DAILY) (ORAL SPRAY VIA NEBULIZER)
     Route: 048
     Dates: start: 20210609, end: 20210610
  4. BUDESONIDE INHALATION SUSPENSION, 0.5 MG/2 ML [Suspect]
     Active Substance: BUDESONIDE
     Indication: CHRONIC OBSTRUCTIVE PULMONARY DISEASE
     Dosage: UNK UNK, BID (ORAL SPRAY VIA NEBULIZER)
     Route: 065

REACTIONS (3)
  - Cough [Recovered/Resolved]
  - Throat irritation [Recovered/Resolved]
  - Product taste abnormal [Unknown]

NARRATIVE: CASE EVENT DATE: 20210609
